FAERS Safety Report 11696863 (Version 2)
Quarter: 2016Q1

REPORT INFORMATION
  Report Type: Report from Study
  Country: BR (occurrence: BR)
  Receive Date: 20151104
  Receipt Date: 20160129
  Transmission Date: 20160525
  Serious: Yes (Hospitalization, Other)
  Sender: FDA-Public Use
  Company Number: BR-ABBVIE-15K-020-1491878-00

PATIENT
  Age: 50 Year
  Sex: Female
  Weight: 79 kg

DRUGS (6)
  1. ISONIAZID. [Suspect]
     Active Substance: ISONIAZID
     Indication: TUBERCULOSIS
     Route: 048
     Dates: start: 20151003
  2. HUMIRA [Suspect]
     Active Substance: ADALIMUMAB
     Indication: PSORIATIC ARTHROPATHY
     Route: 058
     Dates: start: 20131102, end: 20150914
  3. ETHAMBUTOL [Suspect]
     Active Substance: ETHAMBUTOL HYDROCHLORIDE
     Indication: TUBERCULOSIS
     Route: 048
     Dates: start: 20151003
  4. PYRAZINAMIDE. [Suspect]
     Active Substance: PYRAZINAMIDE
     Indication: TUBERCULOSIS
     Route: 048
     Dates: start: 20151003
  5. LOSARTAN. [Concomitant]
     Active Substance: LOSARTAN
     Indication: HYPERTENSION
     Route: 048
     Dates: start: 2012
  6. RIFAMPICIN [Suspect]
     Active Substance: RIFAMPIN
     Indication: TUBERCULOSIS
     Route: 048
     Dates: start: 20151003

REACTIONS (14)
  - Pulmonary oedema [Unknown]
  - QRS axis abnormal [Unknown]
  - Tuberculosis [Not Recovered/Not Resolved]
  - Pleural effusion [Recovered/Resolved]
  - Hypersensitivity [Unknown]
  - Pleurisy [Unknown]
  - Dyspnoea [Recovered/Resolved]
  - Pleural effusion [Unknown]
  - Skin burning sensation [Unknown]
  - Pulmonary granuloma [Unknown]
  - Immunodeficiency [Unknown]
  - Liver disorder [Unknown]
  - Pruritus [Unknown]
  - Spleen disorder [Unknown]

NARRATIVE: CASE EVENT DATE: 201506
